FAERS Safety Report 18221715 (Version 1)
Quarter: 2020Q3

REPORT INFORMATION
  Report Type: Spontaneous
  Country: US (occurrence: US)
  Receive Date: 20200901
  Receipt Date: 20200901
  Transmission Date: 20201103
  Serious: Yes (Hospitalization)
  Sender: FDA-Public Use
  Company Number: None

PATIENT
  Age: 59 Year
  Sex: Male

DRUGS (8)
  1. XARELTO [Concomitant]
     Active Substance: RIVAROXABAN
  2. FUROSEMIDE 40MG [Concomitant]
     Active Substance: FUROSEMIDE
  3. ACYCLOVIR 400MG [Concomitant]
     Active Substance: ACYCLOVIR
  4. FOLIC ACID 1MG [Concomitant]
     Active Substance: FOLIC ACID
  5. ACETAMINOPHEN 325MG [Concomitant]
  6. FLOVENT HFA [Concomitant]
     Active Substance: FLUTICASONE PROPIONATE
  7. MULTAQ [Concomitant]
     Active Substance: DRONEDARONE
  8. BOSULIF [Suspect]
     Active Substance: BOSUTINIB MONOHYDRATE
     Indication: ACUTE LYMPHOCYTIC LEUKAEMIA
     Route: 048
     Dates: start: 20200505

REACTIONS (3)
  - Swelling [None]
  - Fluid retention [None]
  - Visual impairment [None]

NARRATIVE: CASE EVENT DATE: 20200821
